FAERS Safety Report 8762995 (Version 1)
Quarter: 2012Q4

REPORT INFORMATION
  Report Type: Spontaneous
  Country: US (occurrence: None)
  Receive Date: 20120830
  Receipt Date: 20120830
  Transmission Date: 20130627
  Serious: Yes (Other)
  Sender: FDA-Public Use
  Company Number: None

PATIENT
  Age: 28 Year
  Sex: Female

DRUGS (1)
  1. TOPIRAMATE [Suspect]
     Indication: INTRACTABLE EPILEPSY
     Dosage: ONE PO BID
     Route: 048
     Dates: start: 20070305, end: 20120802

REACTIONS (2)
  - Drug ineffective [None]
  - Product quality issue [None]
